FAERS Safety Report 7621414-2 (Version None)
Quarter: 2011Q3

REPORT INFORMATION
  Report Type: 
  Country: None (occurrence: None)
  Receive Date: 20110719
  Receipt Date: 20110707
  Transmission Date: 20111222
  Serious: Yes (Death)
  Sender: FDA-Public Use
  Company Number: JP-CELGENEUS-087-50794-11063437

PATIENT
  Age: 80 Year
  Sex: Male

DRUGS (18)
  1. VIDAZA [Suspect]
     Dosage: 100 MILLIGRAM
     Route: 041
     Dates: start: 20110609, end: 20110613
  2. VIDAZA [Suspect]
     Dosage: 100 MILLIGRAM
     Route: 041
     Dates: start: 20110331, end: 20110406
  3. LASIX [Concomitant]
     Route: 065
     Dates: start: 20110615, end: 20110617
  4. TAMSULOSIN HCL [Concomitant]
     Route: 065
  5. HYDROXYUREA [Concomitant]
     Indication: THROMBOSIS PROPHYLAXIS
     Route: 065
  6. LEVOFLOXACIN [Concomitant]
     Route: 065
     Dates: start: 20110531, end: 20110604
  7. GRANISETRON [Concomitant]
     Route: 065
     Dates: start: 20110331, end: 20110406
  8. GRANISETRON [Concomitant]
     Route: 065
     Dates: start: 20110509, end: 20110513
  9. HYDREA [Concomitant]
     Route: 065
     Dates: start: 20110615, end: 20110615
  10. ASPIRIN [Concomitant]
     Route: 065
  11. LANSOPRAZOLE [Concomitant]
     Route: 065
     Dates: start: 20110615, end: 20110617
  12. VIDAZA [Suspect]
     Dosage: 100 MILLIGRAM
     Route: 041
     Dates: start: 20110501, end: 20110501
  13. HYDREA [Concomitant]
     Route: 065
     Dates: start: 20110616, end: 20110617
  14. DIURETICS [Concomitant]
     Route: 048
     Dates: start: 20110615
  15. MAGNESIUM SULFATE [Concomitant]
     Route: 065
     Dates: start: 20110414
  16. WHOLE BLOOD [Concomitant]
     Route: 051
     Dates: start: 20110601, end: 20110601
  17. MEIACT [Concomitant]
     Route: 065
     Dates: start: 20110525, end: 20110531
  18. SALOBEL [Concomitant]
     Route: 065
     Dates: start: 20110606, end: 20110617

REACTIONS (1)
  - CEREBRAL HAEMORRHAGE [None]
